FAERS Safety Report 17451073 (Version 3)
Quarter: 2020Q1

REPORT INFORMATION
  Report Type: Spontaneous
  Country: US (occurrence: US)
  Receive Date: 20200224
  Receipt Date: 20200311
  Transmission Date: 20200409
  Serious: No
  Sender: FDA-Public Use
  Company Number: NVSC2020US048399

PATIENT
  Sex: Female

DRUGS (2)
  1. BEOVU [Suspect]
     Active Substance: BROLUCIZUMAB-DBLL
     Indication: PRODUCT USED FOR UNKNOWN INDICATION
     Dosage: UNK, QD (2 DIFFERENT LOT NUMBERS)
     Route: 047
  2. BEOVU [Suspect]
     Active Substance: BROLUCIZUMAB-DBLL
     Dosage: UNK, QD (2 DIFFERENT LOT NUMBERS)
     Route: 047

REACTIONS (2)
  - Vitreous floaters [Unknown]
  - Eye inflammation [Unknown]
